FAERS Safety Report 8613197-4 (Version None)
Quarter: 2012Q3

REPORT INFORMATION
  Report Type: 
  Country: None (occurrence: None)
  Receive Date: 20120822
  Receipt Date: 20120816
  Transmission Date: 20120928
  Serious: Yes (Death)
  Sender: FDA-Public Use
  Company Number: JP-BAXTER-2012BAX014712

PATIENT
  Age: 79 Year
  Sex: Male
  Weight: 65 kg

DRUGS (2)
  1. ADVATE [Suspect]
     Route: 042
  2. NEO-MINOPHAGEN C [Concomitant]
     Route: 065

REACTIONS (1)
  - HEPATIC NEOPLASM MALIGNANT [None]
